FAERS Safety Report 7763255-1 (Version None)
Quarter: 2011Q3

REPORT INFORMATION
  Report Type: 
  Country: None (occurrence: None)
  Receive Date: 20110920
  Receipt Date: 20110919
  Transmission Date: 20111222
  Serious: Yes (Death, Other)
  Sender: FDA-Public Use
  Company Number: PHHY2011NL77024

PATIENT
  Sex: Male

DRUGS (7)
  1. NAPROXEN [Concomitant]
     Dosage: 250 MG, 2-3 TIMES DAILY
  2. INHIBIN [Concomitant]
     Dosage: 100 MG, UNK
  3. CALCIUM CARBONATE [Concomitant]
     Dosage: 500 MG, UNK
  4. ZOMETA [Suspect]
     Indication: PROSTATE CANCER METASTATIC
     Dosage: 4 MG/ 5 ML ONCE PER 28 DAYS
     Dates: start: 20110301
  5. ZOMETA [Suspect]
     Dosage: 4 MG/ 5 ML ONCE PER 28 DAYS
     Dates: start: 20110803
  6. ZOMETA [Suspect]
     Dosage: 4 MG/ 5 ML ONCE PER 28 DAYS
     Dates: start: 20110829
  7. ISRADIPINE [Concomitant]
     Dosage: 2.5 MG, BID

REACTIONS (5)
  - DEATH [None]
  - DECREASED APPETITE [None]
  - ANAEMIA [None]
  - PELVIC PAIN [None]
  - GENERAL PHYSICAL HEALTH DETERIORATION [None]
